FAERS Safety Report 6687994-9 (Version None)
Quarter: 2010Q2

REPORT INFORMATION
  Report Type: 
  Country: None (occurrence: None)
  Receive Date: 20100420
  Receipt Date: 20100409
  Transmission Date: 20101027
  Serious: Yes (Death, Life-Threatening, Hospitalization, Other)
  Sender: FDA-Public Use
  Company Number: US-BAYER-201021647GPV

PATIENT
  Age: 54 Year
  Sex: Male

DRUGS (3)
  1. FLUDARABINE [Suspect]
     Indication: CHRONIC LYMPHOCYTIC LEUKAEMIA
     Dosage: FOUR CYCLES
  2. RITUXAN [Suspect]
     Indication: CHRONIC LYMPHOCYTIC LEUKAEMIA
     Dosage: FOUR CYCLES
  3. CYTOXAN [Suspect]
     Indication: CHRONIC LYMPHOCYTIC LEUKAEMIA
     Dosage: FOUR CYCLES

REACTIONS (10)
  - BLOOD CREATINE PHOSPHOKINASE INCREASED [None]
  - COAGULOPATHY [None]
  - DYSPNOEA [None]
  - HEPATIC CIRRHOSIS [None]
  - HEPATITIS B [None]
  - HYPERBILIRUBINAEMIA [None]
  - HYPOTENSION [None]
  - HYPOXIA [None]
  - LACTIC ACIDOSIS [None]
  - RENAL FAILURE ACUTE [None]
